FAERS Safety Report 5843530-8 (Version None)
Quarter: 2008Q3

REPORT INFORMATION
  Report Type: 
  Country: None (occurrence: None)
  Receive Date: 20080812
  Receipt Date: 20080812
  Transmission Date: 20090109
  Serious: Yes (Hospitalization)
  Sender: FDA-Public Use
  Company Number: None

PATIENT
  Sex: Female
  Weight: 125.45 kg

DRUGS (3)
  1. CARBOPLATIN [Suspect]
     Dosage: 520 MG
  2. TAXOL [Suspect]
     Dosage: 270 MG
  3. GLUCOTROL XL [Concomitant]

REACTIONS (13)
  - ANAEMIA [None]
  - BLOOD ALBUMIN DECREASED [None]
  - BLOOD ALKALINE PHOSPHATASE INCREASED [None]
  - BLOOD BILIRUBIN INCREASED [None]
  - CANDIDIASIS [None]
  - CONFUSIONAL STATE [None]
  - CULTURE URINE POSITIVE [None]
  - DECUBITUS ULCER [None]
  - DELIRIUM [None]
  - ESCHERICHIA URINARY TRACT INFECTION [None]
  - HYPOGLYCAEMIA [None]
  - THROMBOCYTOPENIA [None]
  - VAGINAL HAEMORRHAGE [None]
